FAERS Safety Report 8048659-4 (Version None)
Quarter: 2012Q1

REPORT INFORMATION
  Report Type: 
  Country: None (occurrence: None)
  Receive Date: 20120110
  Receipt Date: 20111229
  Transmission Date: 20120608
  Serious: Yes (Other)
  Sender: FDA-Public Use
  Company Number: GGEL20120100001

PATIENT
  Age: 76 Year
  Sex: Male
  Weight: 69 kg

DRUGS (9)
  1. PROPANOL (PROPYL ALCOHOL) (PROPYL ALCOHOL) [Concomitant]
  2. ADALAT LA (NIFEDIPINE) (NIFEDIPINE) [Concomitant]
  3. FUROSEMIDE [Concomitant]
  4. PRAMIPEXOLE DIHYCHLLORIDE [Suspect]
     Indication: PARKINSON'S DISEASE
     Dosage: ORAL
     Route: 048
  5. ALFACALCIDOL (VITAMIN D, VITAMIN D SUBSTANCES) (VITAMIN D, VITAMIN D S [Concomitant]
  6. ARANESP [Concomitant]
  7. PREDNISOLONE (PREDNISOLE) (PREDNISOLONE) [Concomitant]
  8. RANITIDINE [Concomitant]
  9. PERINDOPRIL (PERINDOPRIL) (PERINDOPRIL) [Concomitant]

REACTIONS (2)
  - RENAL IMPAIRMENT [None]
  - TUBULOINTERSTITIAL NEPHRITIS [None]
